FAERS Safety Report 12607478 (Version 1)
Quarter: 2016Q3

REPORT INFORMATION
  Report Type: Spontaneous
  Country: US (occurrence: US)
  Receive Date: 20160729
  Receipt Date: 20160729
  Transmission Date: 20161109
  Serious: Yes (Other)
  Sender: FDA-Public Use
  Company Number: US-MYLANLABS-2014M1006027

PATIENT

DRUGS (9)
  1. GABAPENTIN. [Interacting]
     Active Substance: GABAPENTIN
     Indication: DRUG ABUSE
  2. BUPRENORPHINE W/NALOXONE [Interacting]
     Active Substance: BUPRENORPHINE HYDROCHLORIDE\NALOXONE HYDROCHLORIDE
     Dosage: 8MG/2MG; FILMS
     Route: 065
  3. QUETIAPINE. [Interacting]
     Active Substance: QUETIAPINE
     Indication: OFF LABEL USE
  4. QUETIAPINE. [Interacting]
     Active Substance: QUETIAPINE
     Indication: DRUG ABUSE
  5. BUPRENORPHINE W/NALOXONE [Interacting]
     Active Substance: BUPRENORPHINE HYDROCHLORIDE\NALOXONE HYDROCHLORIDE
     Indication: DRUG ABUSE
  6. GABAPENTIN. [Interacting]
     Active Substance: GABAPENTIN
     Dosage: UP TO 2400MG
     Route: 065
  7. QUETIAPINE. [Suspect]
     Active Substance: QUETIAPINE
     Dosage: UP TO 1000MG
     Route: 065
  8. GABAPENTIN. [Interacting]
     Active Substance: GABAPENTIN
     Indication: OFF LABEL USE
  9. BUPRENORPHINE W/NALOXONE [Interacting]
     Active Substance: BUPRENORPHINE HYDROCHLORIDE\NALOXONE HYDROCHLORIDE
     Dosage: 8MG/2MG; TWO FILMS AS SINGLE DAILY DOSE
     Route: 060

REACTIONS (3)
  - Drug abuse [Unknown]
  - Potentiating drug interaction [Unknown]
  - Poisoning [Unknown]
